FAERS Safety Report 5158570-4 (Version None)
Quarter: 2006Q4

REPORT INFORMATION
  Report Type: 
  Country: None (occurrence: None)
  Receive Date: 20061128
  Receipt Date: 20061120
  Transmission Date: 20070319
  Serious: Yes (Hospitalization)
  Sender: FDA-Public Use
  Company Number: GB-ROCHE-472134

PATIENT
  Age: 20 Year
  Sex: Female
  Weight: 85 kg

DRUGS (1)
  1. ROACCUTANE [Suspect]
     Indication: ACNE
     Route: 048
     Dates: start: 20060314, end: 20060620

REACTIONS (2)
  - DEPRESSION [None]
  - SUICIDAL IDEATION [None]
